FAERS Safety Report 8780259 (Version 4)
Quarter: 2013Q3

REPORT INFORMATION
  Report Type: Spontaneous
  Country: US (occurrence: None)
  Receive Date: 20120829
  Receipt Date: 20130815
  Transmission Date: 20140515
  Serious: Yes (Hospitalization, Other)
  Sender: FDA-Public Use
  Company Number: ADR-2012-01191

PATIENT
  Sex: Male

DRUGS (1)
  1. LIORESAL [Suspect]
     Indication: MUSCLE SPASTICITY

REACTIONS (9)
  - Muscle spasticity [None]
  - Blood creatine phosphokinase increased [None]
  - Device kink [None]
  - Device occlusion [None]
  - Drug withdrawal syndrome [None]
  - Underdose [None]
  - Blood creatine phosphokinase increased [None]
  - Tachycardia [None]
  - Muscle rigidity [None]
